FAERS Safety Report 5054198-5 (Version None)
Quarter: 2006Q3

REPORT INFORMATION
  Report Type: 
  Country: None (occurrence: None)
  Receive Date: 20060713
  Receipt Date: 20060630
  Transmission Date: 20061208
  Serious: Yes (Hospitalization)
  Sender: FDA-Public Use
  Company Number: MEDI-0004714

PATIENT
  Age: 6 Month

DRUGS (1)
  1. SYNAGIS [Suspect]
     Indication: ANTIVIRAL PROPHYLAXIS
     Dosage: 67 MG, 1 IN 1 M, INTRAMUSCULAR
     Route: 030
     Dates: start: 20051205, end: 20060217

REACTIONS (1)
  - BRONCHIOLITIS [None]
